FAERS Safety Report 10424719 (Version 1)
Quarter: 2014Q3

REPORT INFORMATION
  Report Type: Spontaneous
  Country: US (occurrence: US)
  Receive Date: 20140902
  Receipt Date: 20140902
  Transmission Date: 20150326
  Serious: Yes (Other)
  Sender: FDA-Public Use
  Company Number: US-JNJFOC-20140821111

PATIENT
  Sex: Female

DRUGS (1)
  1. LEVAQUIN [Suspect]
     Active Substance: LEVOFLOXACIN
     Indication: PELVIC INFECTION
     Route: 065
     Dates: start: 201406

REACTIONS (7)
  - Fatigue [Unknown]
  - Myalgia [Recovering/Resolving]
  - Somnolence [Unknown]
  - Muscular weakness [Recovering/Resolving]
  - Joint swelling [Recovered/Resolved]
  - Hallucination [Unknown]
  - Arthralgia [Recovering/Resolving]
